FAERS Safety Report 9507501 (Version 1)
Quarter: 2013Q3

REPORT INFORMATION
  Report Type: Spontaneous
  Country: FR (occurrence: FR)
  Receive Date: 20130909
  Receipt Date: 20130909
  Transmission Date: 20140515
  Serious: Yes (Hospitalization, Other)
  Sender: FDA-Public Use
  Company Number: FR-ELI_LILLY_AND_COMPANY-FR201308008667

PATIENT
  Age: 61 Year
  Sex: Male

DRUGS (14)
  1. CYMBALTA [Suspect]
     Dosage: 30 MG, QD
     Route: 048
  2. DUROGESIC [Suspect]
     Indication: PAIN
     Dosage: 100 UG, OTHER
     Route: 062
     Dates: end: 20130614
  3. ZELITREX [Suspect]
     Indication: HERPES SIMPLEX
     Dosage: 500 MG, BID
     Route: 048
  4. EUPRESSYL /00631801/ [Suspect]
     Indication: HYPERTENSION
     Dosage: 30 MG, QD
     Route: 048
  5. LOXEN [Suspect]
     Indication: HYPERTENSION
     Dosage: 50 MG, BID
     Route: 048
  6. KARDEGIC [Suspect]
     Dosage: 160 MG, QD
     Route: 048
  7. RIVOTRIL [Suspect]
     Indication: EPILEPSY
     Dosage: 10 DF, UNKNOWN
     Route: 048
  8. XATRAL [Suspect]
     Dosage: 10 MG, QD
     Route: 048
  9. INEXIUM [Suspect]
     Indication: GASTROOESOPHAGEAL REFLUX DISEASE
     Dosage: 40 MG, QD
     Route: 048
  10. TIORFAN [Suspect]
     Indication: DIARRHOEA
     Dosage: UNK, UNKNOWN
     Route: 048
  11. CARDENSIEL [Suspect]
     Indication: CARDIAC FAILURE
     Dosage: 5 MG, QD
     Route: 048
  12. WELLVONE [Concomitant]
     Dosage: UNK, QD
     Route: 065
  13. VALACICLOVIR [Concomitant]
     Dosage: UNK, BID
     Route: 065
  14. KEPPRA [Concomitant]
     Dosage: UNK, UNKNOWN
     Route: 065

REACTIONS (13)
  - Coma [Recovered/Resolved with Sequelae]
  - Grand mal convulsion [Recovered/Resolved]
  - Loss of consciousness [Unknown]
  - Confusional state [Unknown]
  - Cerebellar syndrome [Unknown]
  - Action tremor [Unknown]
  - Coma scale abnormal [Unknown]
  - Spinal fracture [Unknown]
  - Cerebral microangiopathy [Unknown]
  - Extrapyramidal disorder [Unknown]
  - Agitation [Unknown]
  - Drug abuse [Unknown]
  - Overdose [Unknown]
